FAERS Safety Report 21418616 (Version 2)
Quarter: 2022Q4

REPORT INFORMATION
  Report Type: Spontaneous
  Country: US (occurrence: US)
  Receive Date: 20221006
  Receipt Date: 20221017
  Transmission Date: 20230113
  Serious: No
  Sender: FDA-Public Use
  Company Number: US-XERIS PHARMACEUTICALS-2022XER00346

PATIENT
  Sex: Male

DRUGS (1)
  1. RECORLEV [Suspect]
     Active Substance: LEVOKETOCONAZOLE
     Indication: Cushing^s syndrome
     Dosage: UNK

REACTIONS (1)
  - No adverse event [Unknown]
